FAERS Safety Report 8512258-8 (Version None)
Quarter: 2012Q3

REPORT INFORMATION
  Report Type: 
  Country: None (occurrence: None)
  Receive Date: 20120716
  Receipt Date: 20120709
  Transmission Date: 20120928
  Serious: Yes (Hospitalization, Other)
  Sender: FDA-Public Use
  Company Number: PHHY2012BR060070

PATIENT
  Sex: Female

DRUGS (6)
  1. EXELON [Concomitant]
     Dosage: UNK UKN, UNK
  2. DIOSMIN [Concomitant]
     Indication: CARDIOVASCULAR DISORDER
     Dosage: 2 DF (450/50MG) DAILY
     Route: 048
  3. EXELON [Suspect]
     Indication: DEMENTIA ALZHEIMER'S TYPE
     Dosage: 1 CAPSULE AT MORNING AND 1 AT NIGHT
     Route: 048
  4. CAPTOPRIL [Concomitant]
     Indication: HYPERTENSION
     Dosage: 25 MG, DAILY
     Route: 048
  5. CALSID [Concomitant]
     Indication: OSTEOPOROSIS
     Dosage: 600 MG, AT NIGHT
     Route: 048
     Dates: start: 20120101
  6. PENTOXIFYLLINE [Concomitant]
     Indication: CARDIOVASCULAR DISORDER
     Dosage: 2 DF (400MG) DAILY
     Route: 048

REACTIONS (5)
  - FEMUR FRACTURE [None]
  - DEMENTIA ALZHEIMER'S TYPE [None]
  - ABASIA [None]
  - FALL [None]
  - TREMOR [None]
